FAERS Safety Report 8377289-X (Version None)
Quarter: 2012Q2

REPORT INFORMATION
  Report Type: 
  Country: None (occurrence: None)
  Receive Date: 20120522
  Receipt Date: 20120517
  Transmission Date: 20120825
  Serious: Yes (Hospitalization)
  Sender: FDA-Public Use
  Company Number: CN-ROCHE-1070045

PATIENT
  Age: 87 Year
  Sex: Male
  Weight: 66.9 kg

DRUGS (1)
  1. MABTHERA [Suspect]
     Indication: DIFFUSE LARGE B-CELL LYMPHOMA
     Route: 041
     Dates: start: 20120420

REACTIONS (4)
  - VOCAL CORD PARALYSIS [None]
  - DISEASE PROGRESSION [None]
  - LUNG INFECTION [None]
  - PLEURAL EFFUSION [None]
